FAERS Safety Report 10543129 (Version 1)
Quarter: 2014Q4

REPORT INFORMATION
  Report Type: Report from Study
  Country: US (occurrence: US)
  Receive Date: 20141027
  Receipt Date: 20141027
  Transmission Date: 20150529
  Serious: Yes (Hospitalization)
  Sender: FDA-Public Use
  Company Number: US-ROCHE-1379272

PATIENT
  Age: 62 Year
  Sex: Female

DRUGS (43)
  1. COMBIVENT [Concomitant]
     Active Substance: ALBUTEROL SULFATE\IPRATROPIUM BROMIDE
     Dosage: 103 MG PER ACT
     Route: 065
  2. DILTIAZEM [Concomitant]
     Active Substance: DILTIAZEM
     Route: 048
  3. ZYRTEC [Concomitant]
     Active Substance: CETIRIZINE HYDROCHLORIDE
     Route: 048
  4. CYMBALTA [Concomitant]
     Active Substance: DULOXETINE HYDROCHLORIDE
  5. XANAX [Concomitant]
     Active Substance: ALPRAZOLAM
  6. MUCINEX [Concomitant]
     Active Substance: GUAIFENESIN
  7. METAMUCIL [Concomitant]
     Active Substance: PLANTAGO SEED
  8. GUAIFENESIN. [Concomitant]
     Active Substance: GUAIFENESIN
  9. DONATUSSIN SYRUP [Concomitant]
  10. MILK OF MAGNESIA [Concomitant]
     Active Substance: MAGNESIUM HYDROXIDE
  11. AZELASTINE [Concomitant]
     Active Substance: AZELASTINE
  12. OMEPRAZOLE. [Concomitant]
     Active Substance: OMEPRAZOLE
     Route: 048
  13. IPRATROPIUM BROMIDE. [Concomitant]
     Active Substance: IPRATROPIUM BROMIDE
     Route: 065
  14. DEXTROMETHORPHAN [Concomitant]
     Active Substance: DEXTROMETHORPHAN
  15. HYDROCHLOROTHIAZIDE. [Concomitant]
     Active Substance: HYDROCHLOROTHIAZIDE
  16. LASIX [Concomitant]
     Active Substance: FUROSEMIDE
  17. ASTEPRO [Concomitant]
     Active Substance: AZELASTINE HYDROCHLORIDE
     Route: 045
  18. PREVACID [Concomitant]
     Active Substance: LANSOPRAZOLE
  19. LIPITOR [Concomitant]
     Active Substance: ATORVASTATIN CALCIUM
     Route: 048
  20. WELLBUTRIN [Concomitant]
     Active Substance: BUPROPION HYDROCHLORIDE
  21. ASTELIN [Concomitant]
     Active Substance: AZELASTINE HYDROCHLORIDE
     Route: 045
  22. DARVOCET [Concomitant]
     Active Substance: ACETAMINOPHEN\PROPOXYPHENE HYDROCHLORIDE
  23. ZOFRAN [Concomitant]
     Active Substance: ONDANSETRON HYDROCHLORIDE
  24. PSEUDOEPHEDRINE [Concomitant]
     Active Substance: PSEUDOEPHEDRINE
  25. ALBUTEROL SULFATE. [Concomitant]
     Active Substance: ALBUTEROL SULFATE
     Route: 065
  26. LISINOPRIL. [Concomitant]
     Active Substance: LISINOPRIL
     Route: 048
  27. SINGULAIR [Concomitant]
     Active Substance: MONTELUKAST SODIUM
  28. CARVEDILOL. [Concomitant]
     Active Substance: CARVEDILOL
     Route: 065
  29. TYLENOL [Concomitant]
     Active Substance: ACETAMINOPHEN
  30. ZITHROMAX [Concomitant]
     Active Substance: AZITHROMYCIN DIHYDRATE
  31. ADVAIR HFA [Concomitant]
     Active Substance: FLUTICASONE PROPIONATE\SALMETEROL XINAFOATE
     Dosage: RINSE MOUTH AFTER
     Route: 065
  32. ASPIRIN. [Concomitant]
     Active Substance: ASPIRIN
     Route: 048
  33. NITROGLYCERIN DRIP [Concomitant]
  34. ACCUPRIL [Concomitant]
     Active Substance: QUINAPRIL HYDROCHLORIDE
  35. MORPHINE [Concomitant]
     Active Substance: MORPHINE
  36. IMODIUM [Concomitant]
     Active Substance: LOPERAMIDE HYDROCHLORIDE
  37. CARDIZEM [Concomitant]
     Active Substance: DILTIAZEM HYDROCHLORIDE
  38. CHLORPHENIRAMINE [Concomitant]
     Active Substance: CHLORPHENIRAMINE
  39. ROCEPHIN [Suspect]
     Active Substance: CEFTRIAXONE SODIUM
     Indication: PRODUCT USED FOR UNKNOWN INDICATION
     Route: 065
     Dates: start: 20090822
  40. DUONEB [Concomitant]
     Active Substance: ALBUTEROL SULFATE\IPRATROPIUM BROMIDE
  41. MEDROL [Concomitant]
     Active Substance: METHYLPREDNISOLONE
     Route: 042
  42. LOVENOX [Concomitant]
     Active Substance: ENOXAPARIN SODIUM
     Route: 058
  43. QUINAPRIL [Concomitant]
     Active Substance: QUINAPRIL\QUINAPRIL HYDROCHLORIDE

REACTIONS (10)
  - Pyrexia [Unknown]
  - Chest discomfort [Unknown]
  - Peripheral swelling [Unknown]
  - Troponin increased [Unknown]
  - Asthenia [Unknown]
  - Suicide attempt [Unknown]
  - Chronic obstructive pulmonary disease [Unknown]
  - Asthma [Unknown]
  - Fatigue [Unknown]
  - Hyperhidrosis [Unknown]

NARRATIVE: CASE EVENT DATE: 20091031
